FAERS Safety Report 24733876 (Version 2)
Quarter: 2025Q1

REPORT INFORMATION
  Report Type: Report from Study
  Country: US (occurrence: US)
  Receive Date: 20241214
  Receipt Date: 20250102
  Transmission Date: 20250409
  Serious: Yes (Other)
  Sender: BRISTOL-MYERS SQUIBB COMPANY
  Company Number: US-BRISTOL-MYERS SQUIBB COMPANY-2024-193273

PATIENT
  Age: 58 Year
  Sex: Male
  Weight: 88.4 kg

DRUGS (1)
  1. COBENFY [Suspect]
     Active Substance: TROSPIUM CHLORIDE\XANOMELINE
     Indication: Schizophrenia
     Dosage: 100 MG OR 120 MG
     Route: 048
     Dates: start: 202411

REACTIONS (14)
  - Agitation [Not Recovered/Not Resolved]
  - Anger [Recovering/Resolving]
  - Dysphonia [Not Recovered/Not Resolved]
  - Constipation [Not Recovered/Not Resolved]
  - Dizziness [Not Recovered/Not Resolved]
  - Nausea [Not Recovered/Not Resolved]
  - Depression [Unknown]
  - Decreased appetite [Unknown]
  - Cough [Unknown]
  - Flat affect [Unknown]
  - Hallucination [Unknown]
  - Drug ineffective [Unknown]
  - Weight decreased [Unknown]
  - Irritability [Recovering/Resolving]

NARRATIVE: CASE EVENT DATE: 20241101
